FAERS Safety Report 12927920 (Version 1)
Quarter: 2016Q4

REPORT INFORMATION
  Report Type: Report from Study
  Country: US (occurrence: US)
  Receive Date: 20161110
  Receipt Date: 20161110
  Transmission Date: 20170207
  Serious: Yes (Hospitalization, Other)
  Sender: FDA-Public Use
  Company Number: US-AMGEN-USASL2016154804

PATIENT
  Age: 78 Year
  Sex: Female

DRUGS (16)
  1. TRAZODONE [Concomitant]
     Active Substance: TRAZODONE HYDROCHLORIDE
     Dosage: 50 MG, QWK AT BEDTIME
  2. SPIRONOLACTONE. [Concomitant]
     Active Substance: SPIRONOLACTONE
     Dosage: 25 MG, QD
  3. METOPROLOL SUCCINATE. [Concomitant]
     Active Substance: METOPROLOL SUCCINATE
     Dosage: 50 MG, QD
  4. OXYCODONE [Concomitant]
     Active Substance: OXYCODONE
  5. DILTIAZEM. [Concomitant]
     Active Substance: DILTIAZEM
     Dosage: 120 MG, BID, 24HR ER 2 TABS DAILY
  6. OMEPRAZOLE. [Concomitant]
     Active Substance: OMEPRAZOLE
     Dosage: 40 MG, QD
  7. PRESERVISION [Concomitant]
     Active Substance: MINERALS\VITAMINS
  8. AVARA [Concomitant]
     Active Substance: LEFLUNOMIDE
     Dosage: 20 MG, QD
  9. ALPRAZOLAM. [Concomitant]
     Active Substance: ALPRAZOLAM
     Dosage: 0.5 MG, 1 OR 2 DAILY
  10. FISH OIL [Concomitant]
     Active Substance: FISH OIL
  11. BABY ASPIRIN [Concomitant]
     Active Substance: ASPIRIN
  12. ENBREL [Suspect]
     Active Substance: ETANERCEPT
     Indication: RHEUMATOID ARTHRITIS
     Dosage: 50 MG, QWK
     Route: 065
     Dates: end: 201606
  13. ENBREL [Suspect]
     Active Substance: ETANERCEPT
     Dosage: 50 MG, QWK
     Route: 065
     Dates: start: 2016
  14. ALENDRONATE [Concomitant]
     Active Substance: ALENDRONATE SODIUM
     Dosage: 70 MG, QWK
  15. FOLIC ACID. [Concomitant]
     Active Substance: FOLIC ACID
     Dosage: 1 MG, QD
  16. LORATADINE. [Concomitant]
     Active Substance: LORATADINE
     Dosage: 10 MG, AT BEDTIME

REACTIONS (5)
  - Pneumonia [Recovered/Resolved]
  - Disability [Not Recovered/Not Resolved]
  - Lung neoplasm malignant [Recovered/Resolved]
  - Dysphonia [Unknown]
  - Cough [Recovered/Resolved]

NARRATIVE: CASE EVENT DATE: 201510
